FAERS Safety Report 15447897 (Version 1)
Quarter: 2018Q3

REPORT INFORMATION
  Report Type: Spontaneous
  Country: DE (occurrence: DE)
  Receive Date: 20180928
  Receipt Date: 20180928
  Transmission Date: 20181010
  Serious: Yes (Life-Threatening, Hospitalization)
  Sender: FDA-Public Use
  Company Number: GXKR2009DE06136

PATIENT
  Age: 71 Year
  Sex: Female
  Weight: 80 kg

DRUGS (15)
  1. TAVOR [Concomitant]
     Indication: SLEEP DISORDER
     Dosage: 1 MG, BID
     Route: 048
     Dates: start: 2007
  2. ASPIRIN. [Concomitant]
     Active Substance: ASPIRIN
     Indication: CORONARY ARTERY DISEASE
     Dosage: 100 MG, QD
     Route: 048
     Dates: start: 2002, end: 20080826
  3. ISDN [Concomitant]
     Indication: CORONARY ARTERY DISEASE
     Dosage: 120 MG, QD
     Route: 065
     Dates: start: 1996
  4. TAVOR [Concomitant]
     Dosage: 2 MG, QD
     Route: 048
     Dates: start: 2007
  5. LANTUS [Concomitant]
     Active Substance: INSULIN GLARGINE
     Indication: TYPE 2 DIABETES MELLITUS
     Dosage: 32 IU, QD
     Route: 058
     Dates: start: 1994
  6. ENALAPRIL [Suspect]
     Active Substance: ENALAPRIL
     Indication: HYPERTENSION
     Dosage: 3 MG, QD
     Route: 065
     Dates: start: 2000
  7. ENALAPRIL [Interacting]
     Active Substance: ENALAPRIL
     Dosage: 2.5 MG, QD
     Route: 065
     Dates: end: 20080826
  8. BISOPROLOL [Concomitant]
     Active Substance: BISOPROLOL
     Indication: HYPERTENSION
     Dosage: 5 MG, QD
     Route: 065
     Dates: start: 2002
  9. SPIRONOLACTONE. [Interacting]
     Active Substance: SPIRONOLACTONE
     Indication: HYPERTENSION
     Dosage: 25 MG, QD
     Route: 048
     Dates: start: 2006
  10. FUROSEMIDE. [Concomitant]
     Active Substance: FUROSEMIDE
     Indication: HYPERTENSION
     Dosage: 1 DF, QD
     Route: 048
     Dates: start: 1996
  11. PALLADON [Concomitant]
     Active Substance: HYDROMORPHONE
     Indication: PAIN
     Dosage: 8 MG, BID (16 MG MILLIGRAM(S) EVERY DAY   )
     Route: 048
  12. ATACAND [Interacting]
     Active Substance: CANDESARTAN CILEXETIL
     Indication: HYPERTENSION
     Dosage: 8 MG, QD
     Route: 048
     Dates: start: 2004, end: 20080828
  13. NOVORAPID [Concomitant]
     Active Substance: INSULIN ASPART
     Indication: TYPE 2 DIABETES MELLITUS
     Dosage: DOSIS/APPLIKATION: 26/22/24 IU
     Route: 058
     Dates: start: 1994
  14. SIMVASTATIN. [Concomitant]
     Active Substance: SIMVASTATIN
     Indication: DYSLIPIDAEMIA
     Dosage: 40 MG, QD
     Route: 048
     Dates: start: 1996
  15. BISOPROLOL CT [Concomitant]
     Indication: HYPERTENSION
     Dosage: 5 MG, QD
     Route: 048
     Dates: start: 2002

REACTIONS (7)
  - Oedema peripheral [Recovered/Resolved]
  - Drug interaction [Recovered/Resolved]
  - Hyperkalaemia [Recovered/Resolved]
  - Dyspnoea [Recovered/Resolved]
  - Exercise tolerance decreased [Recovered/Resolved]
  - Renal failure [Unknown]
  - Dizziness [Recovered/Resolved]

NARRATIVE: CASE EVENT DATE: 20080820
